FAERS Safety Report 5427376-0 (Version None)
Quarter: 2007Q3

REPORT INFORMATION
  Report Type: 
  Country: None (occurrence: None)
  Receive Date: 20070823
  Receipt Date: 20070808
  Transmission Date: 20080115
  Serious: Yes (Hospitalization)
  Sender: FDA-Public Use
  Company Number: 8025972

PATIENT
  Age: 3 Year

DRUGS (1)
  1. XYZAL [Suspect]
     Dosage: PO
     Route: 048

REACTIONS (1)
  - SOMNOLENCE [None]
